FAERS Safety Report 7388846-1 (Version None)
Quarter: 2011Q2

REPORT INFORMATION
  Report Type: 
  Country: None (occurrence: None)
  Receive Date: 20110401
  Receipt Date: 20110329
  Transmission Date: 20111010
  Serious: Yes (Other)
  Sender: FDA-Public Use
  Company Number: US-ABBOTT-04P-163-0530047-00

PATIENT
  Age: 9 Year
  Sex: Female
  Weight: 39 kg

DRUGS (2)
  1. LUPRON DEPOT [Suspect]
     Indication: MENARCHE
  2. LUPRON DEPOT [Suspect]
     Indication: PRECOCIOUS PUBERTY
     Route: 030

REACTIONS (4)
  - GOITRE [None]
  - WEIGHT INCREASED [None]
  - AUTOIMMUNE THYROIDITIS [None]
  - ASTHENIA [None]
